FAERS Safety Report 8100369-0 (Version None)
Quarter: 2012Q1

REPORT INFORMATION
  Report Type: 
  Country: None (occurrence: None)
  Receive Date: 20120129
  Receipt Date: 20111124
  Transmission Date: 20120608
  Serious: No
  Sender: FDA-Public Use
  Company Number: US-ABBOTT-11P-163-0877938-00

PATIENT
  Age: 23 Year
  Sex: Female

DRUGS (4)
  1. LOW ESTROGEN [Concomitant]
     Indication: PRODUCT USED FOR UNKNOWN INDICATION
  2. HUMIRA [Suspect]
     Indication: CROHN'S DISEASE
     Dates: start: 20100801
  3. PENTASA [Concomitant]
     Indication: PRODUCT USED FOR UNKNOWN INDICATION
     Dosage: 500MG: 2 PILLS BID
  4. FOLIC ACID [Concomitant]
     Indication: PRODUCT USED FOR UNKNOWN INDICATION

REACTIONS (6)
  - INCORRECT DOSE ADMINISTERED [None]
  - INJECTION SITE URTICARIA [None]
  - FEELING HOT [None]
  - WRONG TECHNIQUE IN DRUG USAGE PROCESS [None]
  - DIZZINESS [None]
  - INJECTION SITE PAIN [None]
